FAERS Safety Report 18928797 (Version 1)
Quarter: 2021Q1

REPORT INFORMATION
  Report Type: Report from Study
  Country: GB (occurrence: GB)
  Receive Date: 20210223
  Receipt Date: 20210223
  Transmission Date: 20210420
  Serious: Yes (Death, Other)
  Sender: FDA-Public Use
  Company Number: GB-JNJFOC-20210233422

PATIENT

DRUGS (2)
  1. TRAMADOL HYDROCHLORIDE. [Suspect]
     Active Substance: TRAMADOL HYDROCHLORIDE
     Indication: PRODUCT USED FOR UNKNOWN INDICATION
     Dosage: UNK
     Route: 065
  2. PROMETHAZINE [Suspect]
     Active Substance: PROMETHAZINE HYDROCHLORIDE
     Indication: PRODUCT USED FOR UNKNOWN INDICATION
     Dosage: UNK
     Route: 065

REACTIONS (11)
  - Intentional product misuse [Fatal]
  - Toxicity to various agents [Fatal]
  - Drug abuse [Fatal]
  - Intentional overdose [Fatal]
  - Overdose [Fatal]
  - Pneumonia [Fatal]
  - Cardiac arrest [Fatal]
  - Drug dependence [Fatal]
  - Drug withdrawal syndrome [Fatal]
  - Completed suicide [Fatal]
  - Respiratory depression [Fatal]
